FAERS Safety Report 9263964 (Version 3)
Quarter: 2013Q2

REPORT INFORMATION
  Report Type: Spontaneous
  Country: FR (occurrence: FR)
  Receive Date: 20130430
  Receipt Date: 20130603
  Transmission Date: 20140414
  Serious: Yes (Hospitalization)
  Sender: FDA-Public Use
  Company Number: FR-GLAXOSMITHKLINE-B0886443A

PATIENT
  Age: 81 Year
  Sex: Male

DRUGS (12)
  1. ZELITREX [Suspect]
     Indication: PRODUCT USED FOR UNKNOWN INDICATION
     Dosage: 500MG PER DAY
     Route: 048
     Dates: start: 20121015, end: 20121017
  2. MABTHERA [Suspect]
     Indication: ACQUIRED HAEMOPHILIA
     Route: 042
     Dates: start: 20120823, end: 20120906
  3. INEXIUM [Suspect]
     Indication: PRODUCT USED FOR UNKNOWN INDICATION
     Dosage: 20MG PER DAY
     Route: 048
     Dates: end: 20121017
  4. BACTRIM [Suspect]
     Indication: PRODUCT USED FOR UNKNOWN INDICATION
     Dosage: .5UNIT THREE TIMES PER WEEK
     Route: 048
     Dates: start: 20120825, end: 20121017
  5. LEVOTHYROX [Concomitant]
     Dosage: 25MCG PER DAY
     Route: 048
  6. SPECIAFOLDINE [Concomitant]
     Dosage: 5MG PER DAY
     Route: 048
  7. SECTRAL [Concomitant]
     Route: 048
  8. MOTILIUM [Concomitant]
     Dosage: 20MG THREE TIMES PER DAY
     Route: 048
  9. CORTANCYL [Concomitant]
     Dosage: 30MG PER DAY
     Route: 048
  10. CACIT D3 [Concomitant]
  11. AERIUS [Concomitant]
  12. GAVISCON [Concomitant]

REACTIONS (3)
  - Agranulocytosis [Unknown]
  - Condition aggravated [Unknown]
  - Pyrexia [Recovered/Resolved]
